FAERS Safety Report 18140339 (Version 1)
Quarter: 2020Q3

REPORT INFORMATION
  Report Type: Spontaneous
  Country: US (occurrence: US)
  Receive Date: 20200812
  Receipt Date: 20200812
  Transmission Date: 20201103
  Serious: Yes (Hospitalization)
  Sender: FDA-Public Use
  Company Number: US-SA-2020SA204546

PATIENT

DRUGS (3)
  1. AVALIDE [Suspect]
     Active Substance: HYDROCHLOROTHIAZIDE\IRBESARTAN
     Indication: PRODUCT USED FOR UNKNOWN INDICATION
     Dosage: UNK
  2. LEVOTHYROXINE SODIUM. [Suspect]
     Active Substance: LEVOTHYROXINE SODIUM
     Indication: PRODUCT USED FOR UNKNOWN INDICATION
     Dosage: 100 UG, BIW
     Route: 048
  3. LEVOTHYROXINE SODIUM. [Suspect]
     Active Substance: LEVOTHYROXINE SODIUM
     Dosage: ONE HALF TABLET (5 IN 1 WK)
     Route: 048

REACTIONS (9)
  - Renal disorder [Recovered/Resolved]
  - Electrolyte imbalance [Recovered/Resolved]
  - Product coating issue [Unknown]
  - Condition aggravated [Recovered/Resolved]
  - Dyspnoea [Recovered/Resolved]
  - Allergy to chemicals [Not Recovered/Not Resolved]
  - Lethargy [Recovered/Resolved]
  - Urinary tract infection [Recovered/Resolved]
  - Allergy to chemicals [Recovered/Resolved]

NARRATIVE: CASE EVENT DATE: 2014
